FAERS Safety Report 24770372 (Version 1)
Quarter: 2024Q4

REPORT INFORMATION
  Report Type: Spontaneous
  Country: US (occurrence: US)
  Receive Date: 20241224
  Receipt Date: 20241224
  Transmission Date: 20250114
  Serious: No
  Sender: CELLTRION
  Company Number: US-CELLTRION INC.-2024US011788

PATIENT

DRUGS (6)
  1. TRUXIMA [Suspect]
     Active Substance: RITUXIMAB-ABBS
     Indication: Immune thrombocytopenia
     Dosage: 660 MG WEEKLY, JANUARY 10TH, JANUARY 17TH, JANUARY 24TH, AND JANUARY 31ST/ ONE INFUSION ONCE A WEEK
     Dates: start: 20240110
  2. TRUXIMA [Suspect]
     Active Substance: RITUXIMAB-ABBS
     Dosage: 660 MG WEEKLY, JANUARY 10TH, JANUARY 17TH, JANUARY 24TH, AND JANUARY 31ST/ ONE INFUSION ONCE A WEEK
     Dates: start: 20240117
  3. TRUXIMA [Suspect]
     Active Substance: RITUXIMAB-ABBS
     Dosage: 660 MG WEEKLY, JANUARY 10TH, JANUARY 17TH, JANUARY 24TH, AND JANUARY 31ST/ ONE INFUSION ONCE A WEEK
     Dates: start: 20240124
  4. TRUXIMA [Suspect]
     Active Substance: RITUXIMAB-ABBS
     Dosage: 660 MG WEEKLY, JANUARY 10TH, JANUARY 17TH, JANUARY 24TH, AND JANUARY 31ST/ ONE INFUSION ONCE A WEEK
     Dates: start: 20240131
  5. ADDERALL [Concomitant]
     Active Substance: AMPHETAMINE ASPARTATE\AMPHETAMINE SULFATE\DEXTROAMPHETAMINE SACCHARATE\DEXTROAMPHETAMINE SULFATE
     Dosage: 20 MG,DAILY
  6. PROGESTERONE [Concomitant]
     Active Substance: PROGESTERONE
     Dosage: 200 MG

REACTIONS (6)
  - Dry mouth [Recovered/Resolved]
  - Abdominal pain upper [Recovered/Resolved]
  - Hot flush [Recovered/Resolved]
  - Taste disorder [Recovered/Resolved]
  - Dysgeusia [Recovered/Resolved]
  - Off label use [Not Recovered/Not Resolved]

NARRATIVE: CASE EVENT DATE: 20240110
